FAERS Safety Report 9699586 (Version 1)
Quarter: 2013Q4

REPORT INFORMATION
  Report Type: Spontaneous
  Country: US (occurrence: US)
  Receive Date: 20131120
  Receipt Date: 20131120
  Transmission Date: 20140711
  Serious: Yes (Hospitalization)
  Sender: FDA-Public Use
  Company Number: US-GILEAD-2013-0087642

PATIENT
  Age: 38 Year
  Sex: Female

DRUGS (1)
  1. TRUVADA [Suspect]
     Indication: PROPHYLAXIS AGAINST HIV INFECTION
     Dosage: UNK

REACTIONS (3)
  - Obsessive-compulsive disorder [Recovering/Resolving]
  - Anxiety [Recovering/Resolving]
  - Sleep disorder [Recovering/Resolving]
